FAERS Safety Report 18069750 (Version 1)
Quarter: 2020Q3

REPORT INFORMATION
  Report Type: Spontaneous
  Country: US (occurrence: US)
  Receive Date: 20200727
  Receipt Date: 20200727
  Transmission Date: 20201103
  Serious: Yes (Other)
  Sender: FDA-Public Use
  Company Number: US-COLGATE PALMOLIVE COMPANY-20200701408

PATIENT

DRUGS (1)
  1. COLGATE KIDS ? BUBBLEFRUIT [Suspect]
     Active Substance: SODIUM FLUORIDE
     Dosage: UNKNOWN DOSE
     Dates: start: 202006, end: 2020

REACTIONS (5)
  - Feeding disorder [Recovering/Resolving]
  - Oral mucosal blistering [Recovering/Resolving]
  - Lip blister [Recovering/Resolving]
  - Stomatitis [Recovering/Resolving]
  - Gingival bleeding [Recovering/Resolving]

NARRATIVE: CASE EVENT DATE: 2020
